FAERS Safety Report 21998774 (Version 2)
Quarter: 2023Q1

REPORT INFORMATION
  Report Type: Spontaneous
  Country: GB (occurrence: GB)
  Receive Date: 20230216
  Receipt Date: 20230223
  Transmission Date: 20230417
  Serious: Yes (Hospitalization, Other)
  Sender: FDA-Public Use
  Company Number: None

PATIENT
  Age: 89 Year
  Sex: Male

DRUGS (18)
  1. CIPROFLOXACIN [Suspect]
     Active Substance: CIPROFLOXACIN
     Indication: Scrotal cellulitis
     Dosage: 500 MG, BID
     Dates: start: 20220617, end: 20220623
  2. DAPAGLIFLOZIN [Concomitant]
     Active Substance: DAPAGLIFLOZIN
     Dosage: 5MG TABLETS 1OM
  3. DAPAGLIFLOZIN [Concomitant]
     Active Substance: DAPAGLIFLOZIN
     Dosage: 5 MG, QD
  4. DOXAZOSIN [Concomitant]
     Active Substance: DOXAZOSIN MESYLATE
     Dosage: 2MG TABLETS 1OM
  5. DOXAZOSIN [Concomitant]
     Active Substance: DOXAZOSIN MESYLATE
     Dosage: 2 MG, QD
  6. FELODIPINE [Concomitant]
     Active Substance: FELODIPINE
     Dosage: 10MG MODIFIED-RELEASE TABLETS 1OM
  7. FELODIPINE [Concomitant]
     Active Substance: FELODIPINE
     Dosage: 10 MG, QD
  8. GABAPENTIN [Concomitant]
     Active Substance: GABAPENTIN
     Dosage: 300 MG CAPSULES
  9. GABAPENTIN [Concomitant]
     Active Substance: GABAPENTIN
     Dosage: 300 MG, TID
  10. LINAGLIPTIN [Concomitant]
     Active Substance: LINAGLIPTIN
     Dosage: 5MG TABLETS 1OM
  11. LINAGLIPTIN [Concomitant]
     Active Substance: LINAGLIPTIN
     Dosage: 5 MG, QD
  12. OMEPRAZOLE [Concomitant]
     Active Substance: OMEPRAZOLE
     Dosage: 20MG GASTRO-RESISTANT CAPSULES 1OM
  13. OMEPRAZOLE [Concomitant]
     Active Substance: OMEPRAZOLE
     Dosage: 20 MG, QD
  14. OXYCODONE [Concomitant]
     Active Substance: OXYCODONE
     Dosage: 5MG/5ML ORAL SOLUTION 2.5MG QDS PRN
     Dates: start: 20220617, end: 20220630
  15. SIMVASTATIN [Concomitant]
     Active Substance: SIMVASTATIN
     Dosage: 40MG TABLETS 1ON
  16. SIMVASTATIN [Concomitant]
     Active Substance: SIMVASTATIN
     Dosage: 40 MG, QD
  17. TIGECYCLINE [Concomitant]
     Active Substance: TIGECYCLINE
     Dosage: 100 MG
     Dates: start: 20220622
  18. COCODAMOL [Concomitant]
     Active Substance: ACETAMINOPHEN\CODEINE PHOSPHATE
     Dosage: UNK

REACTIONS (4)
  - Rash erythematous [Recovered/Resolved]
  - Oedema peripheral [Unknown]
  - Scrotal oedema [Unknown]
  - Penile oedema [Unknown]
